FAERS Safety Report 7193576-5 (Version None)
Quarter: 2010Q4

REPORT INFORMATION
  Report Type: 
  Country: None (occurrence: None)
  Receive Date: 20101223
  Receipt Date: 20101220
  Transmission Date: 20110411
  Serious: Yes (Hospitalization)
  Sender: FDA-Public Use
  Company Number: IT-PFIZER INC-2010161327

PATIENT
  Age: 72 Year
  Sex: Male

DRUGS (4)
  1. TORVAST [Suspect]
     Dosage: 40 MG, DAILY
     Route: 048
     Dates: start: 20100809, end: 20101028
  2. PLAVIX [Suspect]
     Indication: ANGIOPLASTY
     Dosage: 75 MG, 1X/DAY
     Route: 048
     Dates: start: 20100809, end: 20101102
  3. PLAUNAC [Concomitant]
  4. CARDIOASPIRIN [Concomitant]

REACTIONS (4)
  - BLOOD ALKALINE PHOSPHATASE INCREASED [None]
  - GAMMA-GLUTAMYLTRANSFERASE INCREASED [None]
  - HYPERTRANSAMINASAEMIA [None]
  - JAUNDICE [None]
